FAERS Safety Report 22185064 (Version 2)
Quarter: 2023Q2

REPORT INFORMATION
  Report Type: Spontaneous
  Country: IT (occurrence: None)
  Receive Date: 20230407
  Receipt Date: 20230411
  Transmission Date: 20230721
  Serious: Yes (Other)
  Sender: FDA-Public Use
  Company Number: IT-ROCHE-3324994

PATIENT

DRUGS (6)
  1. RITUXIMAB [Suspect]
     Active Substance: RITUXIMAB
     Indication: Mantle cell lymphoma
     Route: 065
  2. BENDAMUSTINE [Suspect]
     Active Substance: BENDAMUSTINE
     Indication: Mantle cell lymphoma
     Route: 065
  3. OXALIPLATIN [Suspect]
     Active Substance: OXALIPLATIN
     Indication: Mantle cell lymphoma
     Route: 065
  4. DEXAMETHASONE [Suspect]
     Active Substance: DEXAMETHASONE
     Indication: Mantle cell lymphoma
     Route: 065
  5. CYTARABINE [Suspect]
     Active Substance: CYTARABINE
     Indication: Mantle cell lymphoma
     Route: 065
  6. IBRUTINIB [Suspect]
     Active Substance: IBRUTINIB
     Indication: Mantle cell lymphoma
     Route: 065

REACTIONS (2)
  - Mantle cell lymphoma [Unknown]
  - Off label use [Unknown]
